FAERS Safety Report 8154250-1 (Version None)
Quarter: 2012Q1

REPORT INFORMATION
  Report Type: 
  Country: None (occurrence: None)
  Receive Date: 20120215
  Receipt Date: 20120207
  Transmission Date: 20120608
  Serious: Yes (Other)
  Sender: FDA-Public Use
  Company Number: AUR-APL-2012-00687

PATIENT
  Age: 63 Year
  Sex: Male

DRUGS (11)
  1. OMEPRAZOLE [Concomitant]
  2. IPRATROPIUM BROMIDE INHALER (IPRATROPIUM BROMIDE) [Concomitant]
  3. BACTRIM [Concomitant]
  4. CEFEPIME [Concomitant]
  5. CIPROFLOXACIN [Suspect]
     Indication: BRONCHIECTASIS
     Dosage: 1000 MG (500 MG, 2 IN 1 D), ORAL
     Route: 048
  6. SODIUM POLYSTYRENE SULFONATE (SODIUM POLYSTYRENE SULFONATE) [Concomitant]
  7. METOPROLOL (METORPOLOL) [Concomitant]
  8. ARFORMOTEROL NEBULIZER (ARFORMOTEROL) [Concomitant]
  9. CEFTAZIDIME [Concomitant]
  10. ITRACONAZOLE [Concomitant]
  11. EZETIMIBE [Concomitant]

REACTIONS (17)
  - HYPERKALAEMIA [None]
  - PAIN IN EXTREMITY [None]
  - ASTHENIA [None]
  - CONDITION AGGRAVATED [None]
  - MYALGIA [None]
  - MUSCULAR WEAKNESS [None]
  - MUSCLE INJURY [None]
  - BLOOD PRESSURE SYSTOLIC INCREASED [None]
  - TOXICITY TO VARIOUS AGENTS [None]
  - VOMITING [None]
  - RENAL FAILURE ACUTE [None]
  - ARTHRALGIA [None]
  - FATIGUE [None]
  - NAUSEA [None]
  - BRONCHITIS [None]
  - MUSCULOSKELETAL PAIN [None]
  - BLOOD CREATINE PHOSPHOKINASE DECREASED [None]
